FAERS Safety Report 5465858-6 (Version None)
Quarter: 2007Q3

REPORT INFORMATION
  Report Type: 
  Country: None (occurrence: None)
  Receive Date: 20070924
  Receipt Date: 20070917
  Transmission Date: 20080115
  Serious: Yes (Death, Hospitalization)
  Sender: FDA-Public Use
  Company Number: PHBS2007AU15484

PATIENT
  Age: 34 Year
  Sex: Male

DRUGS (5)
  1. MYCOPHENOLATE MOFETIL [Suspect]
     Indication: RENAL TRANSPLANT
  2. PREDNISOLONE [Concomitant]
     Dosage: 10 MG/DAY
  3. DILTIAZEM [Concomitant]
     Dosage: 240 MG/DAY
  4. SULFAMETHOXAZOLE W/TRIMETHOPRIM [Concomitant]
  5. CYCLOSPORINE [Suspect]
     Indication: RENAL TRANSPLANT
     Dosage: 100 MG, BID

REACTIONS (15)
  - CARDIAC DISORDER [None]
  - CHILLS [None]
  - COUGH [None]
  - CYTOMEGALOVIRUS INFECTION [None]
  - ERYTHEMA [None]
  - FEBRILE NEUTROPENIA [None]
  - MALAISE [None]
  - NEUTROPENIA [None]
  - OSTEOMYELITIS BACTERIAL [None]
  - OTITIS MEDIA [None]
  - PSEUDOMONAS INFECTION [None]
  - PYREXIA [None]
  - SEPSIS [None]
  - SUDDEN CARDIAC DEATH [None]
  - TONGUE ULCERATION [None]
